FAERS Safety Report 4454820-8 (Version None)
Quarter: 2004Q3

REPORT INFORMATION
  Report Type: 
  Country: None (occurrence: None)
  Receive Date: 20040826
  Receipt Date: 20040610
  Transmission Date: 20050211
  Serious: No
  Sender: FDA-Public Use
  Company Number: WAES 0406USA01348

PATIENT
  Sex: Female
  Weight: 67.1324 kg

DRUGS (14)
  1. ZETIA [Suspect]
     Dosage: PO
     Route: 048
     Dates: start: 20031209, end: 20040501
  2. ACTONEL [Concomitant]
  3. CARDIS [Concomitant]
  4. CATAPRES [Concomitant]
  5. MIACALCIN [Concomitant]
  6. RESTORIL [Concomitant]
  7. SENOKOT [Concomitant]
  8. XANAX [Concomitant]
  9. CALCIUM [Concomitant]
  10. CYCLOSPORINE [Concomitant]
  11. FOLIC ACID [Concomitant]
  12. PREDNISONE [Concomitant]
  13. VITAMIN D [Concomitant]
  14. MULTIVITAMIN [Concomitant]

REACTIONS (3)
  - ASTHENIA [None]
  - BLOOD PRESSURE INCREASED [None]
  - MYALGIA [None]
